FAERS Safety Report 6860588-8 (Version None)
Quarter: 2010Q3

REPORT INFORMATION
  Report Type: 
  Country: None (occurrence: None)
  Receive Date: 20100720
  Receipt Date: 20100709
  Transmission Date: 20110219
  Serious: Yes (Hospitalization)
  Sender: FDA-Public Use
  Company Number: FR-ROCHE-714872

PATIENT
  Sex: Male
  Weight: 140 kg

DRUGS (8)
  1. BLINDED BEVACIZUMAB [Suspect]
     Indication: GLIOBLASTOMA
     Dosage: FORM: VIAL.  TEMPORARILY INTERRUPTED.
     Route: 042
     Dates: start: 20100330, end: 20100625
  2. TEMOZOLOMIDE [Suspect]
     Indication: GLIOBLASTOMA
     Dosage: FREQUENCY: PER DAY.  TEMPORARILY INTERRUPTED.
     Route: 048
     Dates: start: 20100330, end: 20100613
  3. OXCARBAZEPINE [Concomitant]
     Dates: start: 20100608, end: 20100618
  4. OXCARBAZEPINE [Concomitant]
     Dates: start: 20100619, end: 20100628
  5. OXCARBAZEPINE [Concomitant]
     Dates: start: 20100629, end: 20100708
  6. ALPRAZOLAM [Concomitant]
     Dates: start: 20100413, end: 20100702
  7. HYDROXYZINE [Concomitant]
     Dates: start: 20100426, end: 20100702
  8. HALOPERIDOL [Concomitant]
     Dates: start: 20100426, end: 20100628

REACTIONS (1)
  - ILL-DEFINED DISORDER [None]
